FAERS Safety Report 8032963-X (Version None)
Quarter: 2011Q4

REPORT INFORMATION
  Report Type: 
  Country: None (occurrence: None)
  Receive Date: 20111223
  Receipt Date: 20111209
  Transmission Date: 20120403
  Serious: Yes (Other)
  Sender: FDA-Public Use
  Company Number: ACO_25738_1997

PATIENT
  Age: 55 Year
  Sex: Female

DRUGS (4)
  1. PROZAC [Concomitant]
  2. ZANAFLEX [Suspect]
     Indication: PRODUCT USED FOR UNKNOWN INDICATION
     Dosage: ORAL
     Route: 048
  3. DITROPAN [Concomitant]
  4. BACTRIM DS [Concomitant]

REACTIONS (3)
  - CONVULSION [None]
  - MUSCLE SPASMS [None]
  - BURNING SENSATION [None]
